FAERS Safety Report 19302874 (Version 1)
Quarter: 2021Q2

REPORT INFORMATION
  Report Type: Report from Study
  Country: FI (occurrence: FI)
  Receive Date: 20210525
  Receipt Date: 20210525
  Transmission Date: 20210717
  Serious: Yes (Death)
  Sender: FDA-Public Use
  Company Number: FI-TEVA-2021-FI-1914734

PATIENT
  Age: 43 Year
  Sex: Male

DRUGS (2)
  1. CHLORCYCLIZINE [Concomitant]
     Active Substance: CHLORCYCLIZINE
     Indication: PRODUCT USED FOR UNKNOWN INDICATION
     Route: 065
  2. BUPRENORPHINE. [Suspect]
     Active Substance: BUPRENORPHINE
     Indication: PRODUCT USED FOR UNKNOWN INDICATION
     Route: 065

REACTIONS (2)
  - Accidental poisoning [Fatal]
  - Toxicity to various agents [Fatal]
